FAERS Safety Report 7025236-5 (Version None)
Quarter: 2010Q4

REPORT INFORMATION
  Report Type: 
  Country: None (occurrence: None)
  Receive Date: 20101001
  Receipt Date: 20100907
  Transmission Date: 20110411
  Serious: No
  Sender: FDA-Public Use
  Company Number: US-TEVA-245774USA

PATIENT
  Sex: Female
  Weight: 52.21 kg

DRUGS (4)
  1. ALBUTEROL SULFATE AUTOHALER [Suspect]
     Route: 055
     Dates: start: 20100812, end: 20100812
  2. TEMAZEPAM [Concomitant]
  3. ALPRAZOLAM [Concomitant]
  4. SIMVASTATIN [Concomitant]

REACTIONS (1)
  - DIZZINESS [None]
